FAERS Safety Report 8049711-X (Version None)
Quarter: 2012Q1

REPORT INFORMATION
  Report Type: 
  Country: None (occurrence: None)
  Receive Date: 20120117
  Receipt Date: 20111201
  Transmission Date: 20120608
  Serious: Yes (Hospitalization)
  Sender: FDA-Public Use
  Company Number: GB-GLAXOSMITHKLINE-B0766861A

PATIENT
  Sex: Female

DRUGS (4)
  1. TROBALT [Suspect]
     Indication: PRODUCT USED FOR UNKNOWN INDICATION
     Dosage: 150MG PER DAY
     Route: 048
     Dates: start: 20110822, end: 20111114
  2. TEGRETOL [Concomitant]
     Dosage: 600MG PER DAY
  3. ZONISAMIDE [Concomitant]
     Dosage: 450MG PER DAY
  4. CLOBAZAM [Concomitant]
     Dosage: 30MG PER DAY

REACTIONS (2)
  - HEADACHE [None]
  - LETHARGY [None]
